FAERS Safety Report 21097415 (Version 4)
Quarter: 2023Q1

REPORT INFORMATION
  Report Type: Report from Study
  Country: US (occurrence: US)
  Receive Date: 20220719
  Receipt Date: 20230206
  Transmission Date: 20230418
  Serious: Yes (Hospitalization, Other)
  Sender: FDA-Public Use
  Company Number: US-ABBVIE-22K-163-4471076-00

PATIENT
  Sex: Male

DRUGS (5)
  1. HUMIRA [Suspect]
     Active Substance: ADALIMUMAB
     Indication: Colitis ulcerative
     Dosage: LOT NUMBER - 2F511A, F08448
     Route: 058
  2. HUMIRA [Suspect]
     Active Substance: ADALIMUMAB
     Route: 058
     Dates: start: 20181022, end: 20181022
  3. HUMIRA [Suspect]
     Active Substance: ADALIMUMAB
     Route: 058
     Dates: start: 2017
  4. HUMIRA [Suspect]
     Active Substance: ADALIMUMAB
     Route: 058
  5. PFIZER-BIONTECH COVID-19 VACCINE [Concomitant]
     Active Substance: TOZINAMERAN
     Indication: COVID-19 immunisation
     Dosage: TIME INTERVAL: 1 TOTAL: 1IN1
     Route: 030

REACTIONS (10)
  - Intestinal obstruction [Unknown]
  - Sinusitis [Unknown]
  - Illness [Unknown]
  - Eye disorder [Unknown]
  - Wound complication [Unknown]
  - Hypoaesthesia [Unknown]
  - Basal cell carcinoma [Unknown]
  - Paraesthesia [Unknown]
  - Weight decreased [Unknown]
  - Wound complication [Unknown]

NARRATIVE: CASE EVENT DATE: 20220101
